FAERS Safety Report 8938853 (Version 2)
Quarter: 2013Q3

REPORT INFORMATION
  Report Type: Spontaneous
  Country: CH (occurrence: CH)
  Receive Date: 20121203
  Receipt Date: 20130715
  Transmission Date: 20140515
  Serious: Yes (Other)
  Sender: FDA-Public Use
  Company Number: CH-JNJFOC-20121109425

PATIENT
  Age: 43 Year
  Sex: Male
  Weight: 94 kg

DRUGS (7)
  1. STELARA [Suspect]
     Indication: PSORIASIS
     Route: 058
     Dates: start: 20120824, end: 20120824
  2. METHOTREXATE [Suspect]
     Indication: PRODUCT USED FOR UNKNOWN INDICATION
     Route: 065
     Dates: start: 20111118, end: 20120615
  3. COVERSUM [Concomitant]
     Route: 048
  4. CONCOR [Concomitant]
     Route: 048
  5. ASPIRIN CARDIO [Concomitant]
     Route: 048
  6. CHONDROSULF [Concomitant]
     Route: 048
  7. OLFLEX PLUS [Concomitant]
     Route: 065

REACTIONS (4)
  - Pericardial effusion [Recovered/Resolved]
  - Pericarditis [Recovered/Resolved]
  - Chest pain [Recovered/Resolved]
  - C-reactive protein increased [Recovered/Resolved]
